FAERS Safety Report 18314914 (Version 1)
Quarter: 2020Q3

REPORT INFORMATION
  Report Type: Spontaneous
  Country: US (occurrence: US)
  Receive Date: 20200925
  Receipt Date: 20200925
  Transmission Date: 20201103
  Serious: Yes (Life-Threatening, Hospitalization, Disabling)
  Sender: FDA-Public Use
  Company Number: US-SA-2020SA264557

PATIENT

DRUGS (13)
  1. ASPIRINE [Suspect]
     Active Substance: ASPIRIN
     Indication: CORONARY ARTERY DISEASE
     Dosage: 325 MG, QD
     Route: 048
  2. FUROSEMIDE. [Concomitant]
     Active Substance: FUROSEMIDE
     Dosage: UNK
  3. DIGOXIN. [Suspect]
     Active Substance: DIGOXIN
     Dosage: 0.25 MG, QD
     Route: 048
  4. PLAVIX [Suspect]
     Active Substance: CLOPIDOGREL BISULFATE
     Indication: CORONARY ARTERY DISEASE
     Dosage: 75 MG, QD
     Route: 048
     Dates: start: 20050301, end: 20050304
  5. TORASEMIDE [Suspect]
     Active Substance: TORSEMIDE
     Indication: PRODUCT USED FOR UNKNOWN INDICATION
     Dosage: UNK
     Dates: start: 20050228, end: 20050304
  6. LEVOFLOXACIN. [Suspect]
     Active Substance: LEVOFLOXACIN
     Indication: PNEUMONIA
     Dosage: 250 MG
     Route: 048
     Dates: start: 20050228, end: 20050303
  7. DIOVAN [Concomitant]
     Active Substance: VALSARTAN
     Dosage: UNK
  8. AMLODIPINE BESILATE [Concomitant]
     Active Substance: AMLODIPINE BESYLATE
     Dosage: UNK
  9. CLOPIDOGREL BISULFATE. [Suspect]
     Active Substance: CLOPIDOGREL BISULFATE
     Indication: CORONARY ARTERY DISEASE
  10. VALSARTAN. [Concomitant]
     Active Substance: VALSARTAN
  11. TORASEMIDE [Suspect]
     Active Substance: TORSEMIDE
     Dosage: 80 MG, QD
     Dates: start: 20050228, end: 20050304
  12. ENOXAPARIN SODIUM. [Suspect]
     Active Substance: ENOXAPARIN SODIUM
     Indication: ACUTE CORONARY SYNDROME
     Dosage: UNK
     Route: 058
     Dates: start: 20050228, end: 20050307
  13. AMLODIPINE [Concomitant]
     Active Substance: AMLODIPINE BESYLATE
     Dosage: UNK

REACTIONS (4)
  - Cardiac failure congestive [Recovered/Resolved]
  - Pneumonia [Recovered/Resolved]
  - Acute kidney injury [Recovered/Resolved]
  - Anaemia [Recovered/Resolved]

NARRATIVE: CASE EVENT DATE: 20050228
